FAERS Safety Report 23770537 (Version 2)
Quarter: 2024Q2

REPORT INFORMATION
  Report Type: Spontaneous
  Country: KR (occurrence: KR)
  Receive Date: 20240422
  Receipt Date: 20240426
  Transmission Date: 20240716
  Serious: Yes (Disabling, Other)
  Sender: FDA-Public Use
  Company Number: KR-002147023-NVSC2024KR038639

PATIENT
  Age: 70 Year
  Sex: Female

DRUGS (1)
  1. BEOVU [Suspect]
     Active Substance: BROLUCIZUMAB-DBLL
     Indication: Neovascular age-related macular degeneration
     Dosage: SINGLE DOSE OF (6MG/0.05ML)
     Route: 031
     Dates: start: 20220817, end: 20220817

REACTIONS (5)
  - Retinal occlusive vasculitis [Recovered/Resolved with Sequelae]
  - Visual acuity reduced [Recovered/Resolved with Sequelae]
  - Eye pain [Recovered/Resolved with Sequelae]
  - Eye inflammation [Recovered/Resolved with Sequelae]
  - Retinal vascular occlusion [Recovered/Resolved with Sequelae]

NARRATIVE: CASE EVENT DATE: 20220909
